FAERS Safety Report 19812046 (Version 2)
Quarter: 2021Q4

REPORT INFORMATION
  Report Type: Spontaneous
  Country: US (occurrence: US)
  Receive Date: 20210909
  Receipt Date: 20211215
  Transmission Date: 20220304
  Serious: No
  Sender: FDA-Public Use
  Company Number: US-BOEHRINGERINGELHEIM-2021-BI-126084

PATIENT
  Age: 72 Year
  Sex: Male

DRUGS (1)
  1. JARDIANCE [Suspect]
     Active Substance: EMPAGLIFLOZIN
     Indication: Product used for unknown indication
     Dates: start: 202011, end: 202102

REACTIONS (4)
  - Cystitis [Recovering/Resolving]
  - Blood glucose increased [Recovering/Resolving]
  - Glucose urine present [Unknown]
  - Infection [Unknown]

NARRATIVE: CASE EVENT DATE: 20210101
